FAERS Safety Report 9928229 (Version 1)
Quarter: 2014Q1

REPORT INFORMATION
  Report Type: Spontaneous
  Country: US (occurrence: None)
  Receive Date: 20140226
  Receipt Date: 20140226
  Transmission Date: 20141002
  Serious: Yes (Life-Threatening, Disabling, Other)
  Sender: FDA-Public Use
  Company Number: None

PATIENT
  Age: 87 Year
  Sex: Female
  Weight: 58.97 kg

DRUGS (1)
  1. VANCOMYCIN [Suspect]
     Indication: SEPSIS
     Dosage: BAG INTERVENIOUS  ONCE DAILY  INTO A VEIN
     Route: 042
     Dates: start: 20140109, end: 20140212

REACTIONS (6)
  - Malaise [None]
  - Appetite disorder [None]
  - Arthralgia [None]
  - Drug hypersensitivity [None]
  - Stress [None]
  - Depression [None]
